FAERS Safety Report 7646864-X (Version None)
Quarter: 2011Q3

REPORT INFORMATION
  Report Type: 
  Country: None (occurrence: None)
  Receive Date: 20110801
  Receipt Date: 20100824
  Transmission Date: 20111222
  Serious: Yes (Hospitalization)
  Sender: FDA-Public Use
  Company Number: US-SANOFI-AVENTIS-2010SA051528

PATIENT
  Sex: Male

DRUGS (1)
  1. AMBIEN [Suspect]
     Route: 065
     Dates: start: 20100101

REACTIONS (2)
  - AMNESIA [None]
  - TRANSIENT ISCHAEMIC ATTACK [None]
